FAERS Safety Report 12186096 (Version 4)
Quarter: 2016Q2

REPORT INFORMATION
  Report Type: Report from Study
  Country: DE (occurrence: DE)
  Receive Date: 20160317
  Receipt Date: 20160607
  Transmission Date: 20160815
  Serious: Yes (Hospitalization)
  Sender: FDA-Public Use
  Company Number: DE-BIOGEN-2016BI00191661

PATIENT
  Age: 43 Year
  Sex: Female

DRUGS (6)
  1. FAMPYRA [Suspect]
     Active Substance: DALFAMPRIDINE
     Indication: GAIT DISTURBANCE
     Route: 048
     Dates: start: 20140207
  2. TIZANIDINE. [Concomitant]
     Active Substance: TIZANIDINE
     Dates: start: 20140207
  3. TIZANIDINE. [Concomitant]
     Active Substance: TIZANIDINE
     Route: 048
  4. ZOPICLONE [Concomitant]
     Active Substance: ZOPICLONE
     Route: 065
     Dates: start: 20130210
  5. TIZANIDINE. [Concomitant]
     Active Substance: TIZANIDINE
     Dates: start: 20140207
  6. CITALOPRAM [Concomitant]
     Active Substance: CITALOPRAM HYDROBROMIDE
     Route: 048
     Dates: start: 20040830

REACTIONS (1)
  - Meningitis [Recovered/Resolved]

NARRATIVE: CASE EVENT DATE: 20140403
